FAERS Safety Report 14144836 (Version 1)
Quarter: 2017Q4

REPORT INFORMATION
  Report Type: Report from Study
  Country: None (occurrence: US)
  Receive Date: 20171031
  Receipt Date: 20171031
  Transmission Date: 20180321
  Serious: Yes (Hospitalization)
  Sender: FDA-Public Use
  Company Number: US-BIOVITRUM-2017US0709

PATIENT
  Age: 14 Year
  Sex: Male

DRUGS (1)
  1. ORFADIN [Suspect]
     Active Substance: NITISINONE
     Indication: TYROSINAEMIA
     Route: 048
     Dates: start: 20140416

REACTIONS (6)
  - Abdominal pain upper [Unknown]
  - Drug dose omission [Unknown]
  - Vomiting [Unknown]
  - Chest pain [Unknown]
  - Gastroenteritis viral [Unknown]
  - Diet noncompliance [Unknown]

NARRATIVE: CASE EVENT DATE: 201707
